FAERS Safety Report 17361299 (Version 4)
Quarter: 2020Q4

REPORT INFORMATION
  Report Type: Spontaneous
  Country: US (occurrence: US)
  Receive Date: 20200203
  Receipt Date: 20201126
  Transmission Date: 20210113
  Serious: Yes (Life-Threatening, Hospitalization, Other)
  Sender: FDA-Public Use
  Company Number: US-GLENMARK PHARMACEUTICALS-2020GMK045821

PATIENT
  Age: 11 Month
  Sex: Female
  Weight: 8.5 kg

DRUGS (1)
  1. LIDOCAINE. [Suspect]
     Active Substance: LIDOCAINE
     Indication: DERMATITIS DIAPER
     Dosage: UNK, (MULTIPLE TIMES)
     Route: 061

REACTIONS (2)
  - Toxicity to various agents [Recovered/Resolved]
  - Status epilepticus [Recovered/Resolved]
